FAERS Safety Report 4619211-5 (Version None)
Quarter: 2005Q2

REPORT INFORMATION
  Report Type: 
  Country: None (occurrence: None)
  Receive Date: 20050321
  Receipt Date: 20040901
  Transmission Date: 20051028
  Serious: Yes (Disabling)
  Sender: FDA-Public Use
  Company Number: 2004-09-0255

PATIENT
  Age: 52 Year
  Sex: Female
  Weight: 95.2554 kg

DRUGS (7)
  1. PEG-INTRON [Suspect]
     Indication: HEPATITIS C
     Dosage: 150 MCG QWK SUBCUTANEOUS
     Route: 058
     Dates: start: 20040201, end: 20040301
  2. PEG-INTRON [Suspect]
     Indication: HEPATITIS C
     Dosage: 150 MCG QW SUBCUTANEOUS
     Route: 058
     Dates: start: 20040301, end: 20040401
  3. RIBAVIRIN [Suspect]
     Indication: HEPATITIS C
     Dosage: 1200 MG QD ORAL
     Route: 048
     Dates: start: 20040201, end: 20040401
  4. EFFEXOR [Concomitant]
  5. LOTENSIN [Concomitant]
  6. PRILOSEC [Concomitant]
  7. SEROQUEL (QUETIAPINE FUMURATE) [Concomitant]

REACTIONS (9)
  - ABDOMINAL DISCOMFORT [None]
  - DEPRESSION [None]
  - FATIGUE [None]
  - HAEMATURIA [None]
  - INFLUENZA LIKE ILLNESS [None]
  - INJECTION SITE ERYTHEMA [None]
  - INSOMNIA [None]
  - NAUSEA [None]
  - SINUSITIS [None]
